FAERS Safety Report 10870217 (Version 2)
Quarter: 2015Q1

REPORT INFORMATION
  Report Type: Spontaneous
  Country: PT (occurrence: PT)
  Receive Date: 20150226
  Receipt Date: 20150312
  Transmission Date: 20150721
  Serious: Yes (Other)
  Sender: FDA-Public Use
  Company Number: PT-TEVA-542427ISR

PATIENT
  Age: 5 Year
  Sex: Male

DRUGS (4)
  1. IBUPROFEN. [Suspect]
     Active Substance: IBUPROFEN
  2. BACITRACINA [Concomitant]
     Route: 061
  3. PENICILINA G [Concomitant]
  4. CLINDAMICINA [Concomitant]
     Route: 042

REACTIONS (4)
  - Splenic abscess [Unknown]
  - Pneumonia [Unknown]
  - Skin necrosis [Unknown]
  - Superinfection [Unknown]
